FAERS Safety Report 5718793-X (Version None)
Quarter: 2008Q2

REPORT INFORMATION
  Report Type: 
  Country: None (occurrence: None)
  Receive Date: 20080425
  Receipt Date: 20080331
  Transmission Date: 20081010
  Serious: No
  Sender: FDA-Public Use
  Company Number: US-BOEHRINGER INGELHEIM GMBH, GERMANY-2008-BP-04935BP

PATIENT
  Sex: Female

DRUGS (2)
  1. SPIRIVA [Suspect]
     Indication: CHRONIC OBSTRUCTIVE PULMONARY DISEASE
     Route: 055
     Dates: start: 20050101, end: 20080201
  2. SPIRIVA [Suspect]
     Indication: ASTHMA

REACTIONS (5)
  - CONSTIPATION [None]
  - DRY MOUTH [None]
  - RHINORRHOEA [None]
  - THROAT IRRITATION [None]
  - VISION BLURRED [None]
